FAERS Safety Report 7599232-3 (Version None)
Quarter: 2011Q3

REPORT INFORMATION
  Report Type: 
  Country: None (occurrence: None)
  Receive Date: 20110711
  Receipt Date: 20110621
  Transmission Date: 20111222
  Serious: Yes (Other)
  Sender: FDA-Public Use
  Company Number: US-BAYER-2011-006292

PATIENT
  Sex: Female
  Weight: 94.331 kg

DRUGS (21)
  1. CALCIUM CHLORIDE [Concomitant]
     Dosage: UNK
     Dates: start: 20051020, end: 20051020
  2. LEVOPHED [Concomitant]
     Dosage: UNK
     Dates: start: 20051020, end: 20051020
  3. NITROGLYCERIN [Concomitant]
     Dosage: UNK
     Dates: start: 20051020, end: 20051020
  4. FUROSEMIDE [Concomitant]
     Dosage: UNK
     Dates: start: 20051020, end: 20051020
  5. AMIODARONE HCL [Concomitant]
     Indication: TACHYCARDIA
     Dosage: 400 MG, BID
  6. PROTAMINE SULFATE [Concomitant]
     Dosage: UNK
     Dates: start: 20051020, end: 20051020
  7. INSULIN [Concomitant]
     Dosage: UNK
     Dates: start: 20051020, end: 20051020
  8. TENORMIN [Concomitant]
     Dosage: UNK
     Dates: start: 20000101
  9. CEFUROXIME [Concomitant]
     Dosage: UNK
     Dates: start: 20051020, end: 20051020
  10. LIDOCAINE [Concomitant]
     Dosage: UNK
     Dates: start: 20051020, end: 20051020
  11. REGITINE [PHENTOLAMINE HYDROCHLORIDE] [Concomitant]
     Dosage: UNK
     Dates: start: 20051020, end: 20051020
  12. TRASYLOL [Suspect]
     Indication: MITRAL VALVE REPLACEMENT
     Dosage: 800 ML (400 ML X2)
     Route: 042
     Dates: start: 20051020, end: 20051020
  13. TRASYLOL [Suspect]
     Indication: COX-MAZE PROCEDURE
     Dosage: 50 ML DRIP X4HRS
     Route: 042
     Dates: start: 20051020, end: 20051020
  14. LASIX + K [Concomitant]
     Dosage: UNK
     Dates: start: 20000101
  15. FAMOTIDINE [Concomitant]
     Dosage: UNK
     Dates: start: 20051020, end: 20051020
  16. MIDAZOLAM HCL [Concomitant]
     Dosage: UNK
     Dates: start: 20051020, end: 20051020
  17. TRASYLOL [Suspect]
     Indication: TRICUSPID VALVE REPAIR
     Dosage: 100 ML DRIP X1HR
     Route: 042
     Dates: start: 20051020, end: 20051020
  18. PANCURONIUM [Concomitant]
     Dosage: UNK
     Dates: start: 20051020, end: 20051020
  19. DIPHENHYDRAMINE HCL [Concomitant]
     Dosage: UNK
     Dates: start: 20051020, end: 20051020
  20. HEPARIN [Concomitant]
     Dosage: UNK
     Dates: start: 20051020, end: 20051020
  21. MILRINONE [Concomitant]
     Dosage: UNK
     Dates: start: 20051020, end: 20051020

REACTIONS (12)
  - EMOTIONAL DISTRESS [None]
  - RENAL INJURY [None]
  - INJURY [None]
  - ANXIETY [None]
  - UNEVALUABLE EVENT [None]
  - DEPRESSION [None]
  - FEAR [None]
  - NERVOUSNESS [None]
  - RENAL FAILURE [None]
  - MULTI-ORGAN FAILURE [None]
  - PAIN [None]
  - FEAR OF DEATH [None]
